FAERS Safety Report 9375382 (Version 1)
Quarter: 2013Q2

REPORT INFORMATION
  Report Type: Spontaneous
  Country: FR (occurrence: FR)
  Receive Date: 20130628
  Receipt Date: 20130628
  Transmission Date: 20140414
  Serious: Yes (Other)
  Sender: FDA-Public Use
  Company Number: FR-BRISTOL-MYERS SQUIBB COMPANY-19046135

PATIENT
  Age: 40 Year
  Sex: Female

DRUGS (5)
  1. APROVEL TABS 300 MG [Suspect]
     Route: 048
     Dates: start: 1997
  2. KARDEGIC [Concomitant]
     Dosage: POWDER FOR ORAL SOLUTION IN SACHETS
  3. CRESTOR [Concomitant]
     Dosage: TABLET
  4. LEVEMIR [Concomitant]
     Dosage: SOLUTION FOR INJECTION IN PREFILLED PEN (INSULIN DETEMIR)
     Route: 058
     Dates: start: 1983
  5. NOVORAPID [Concomitant]
     Dosage: 1 DF : 10 U/ML. SOLUTION FOR INJECTION IN PREFILLED PEN (INSULIN ASPARTE).
     Dates: start: 1983

REACTIONS (1)
  - Anaemia [Not Recovered/Not Resolved]
